FAERS Safety Report 7356847 (Version 4)
Quarter: 2013Q1

REPORT INFORMATION
  Report Type: Spontaneous
  Country: JP (occurrence: JP)
  Receive Date: 20100416
  Receipt Date: 20130221
  Transmission Date: 20140127
  Serious: Yes (Other)
  Sender: FDA-Public Use
  Company Number: JP-PFIZER INC-2010043606

PATIENT
  Age: 37 Year
  Sex: Female
  Weight: 52 kg

DRUGS (2)
  1. SOMAVERT [Suspect]
     Indication: ACROMEGALY
     Dosage: 40 MG, 1X/DAY
     Route: 058
     Dates: start: 20090402, end: 20090402
  2. SOMAVERT [Suspect]
     Dosage: 10 MG, 1X/DAY
     Route: 058
     Dates: start: 20090403, end: 20091105

REACTIONS (2)
  - Pituitary tumour benign [Unknown]
  - Hepatic function abnormal [Recovered/Resolved]
